FAERS Safety Report 11300724 (Version 1)
Quarter: 2015Q3

REPORT INFORMATION
  Report Type: Spontaneous
  Country: US (occurrence: None)
  Receive Date: 20150722
  Receipt Date: 20150722
  Transmission Date: 20151125
  Serious: Yes (Other)
  Sender: FDA-Public Use
  Company Number: DEP_03197_2015

PATIENT
  Age: 81 Year
  Sex: Female
  Weight: 155 kg

DRUGS (3)
  1. GRALISE [Suspect]
     Active Substance: GABAPENTIN
     Indication: NERVE INJURY
     Dosage: 900 MG, QD ORAL?1200 MG QD ORAL
     Route: 048
     Dates: start: 20150701, end: 20150706
  2. GRALISE [Suspect]
     Active Substance: GABAPENTIN
     Indication: OFF LABEL USE
     Dosage: 900 MG, QD ORAL?1200 MG QD ORAL
     Route: 048
     Dates: start: 20150701, end: 20150706
  3. GRALISE [Suspect]
     Active Substance: GABAPENTIN
     Indication: SPINAL COLUMN STENOSIS
     Dosage: 900 MG, QD ORAL?1200 MG QD ORAL
     Route: 048
     Dates: start: 20150701, end: 20150706

REACTIONS (2)
  - Visual impairment [None]
  - Balance disorder [None]

NARRATIVE: CASE EVENT DATE: 20150701
